FAERS Safety Report 8096724-8 (Version None)
Quarter: 2012Q1

REPORT INFORMATION
  Report Type: 
  Country: None (occurrence: None)
  Receive Date: 20120129
  Receipt Date: 20111116
  Transmission Date: 20120608
  Serious: No
  Sender: FDA-Public Use
  Company Number: US-ABBOTT-11P-163-0874735-00

PATIENT
  Sex: Female
  Weight: 93.524 kg

DRUGS (5)
  1. BENICAR [Concomitant]
     Indication: HYPERTENSION
  2. ZOLOFT [Concomitant]
     Indication: ANXIETY
  3. HUMIRA [Suspect]
     Dosage: INTERRUPTED TXMNT D/T AE
     Dates: start: 20110901, end: 20111001
  4. HUMIRA [Suspect]
     Dates: start: 20110901, end: 20111001
  5. HUMIRA [Suspect]
     Indication: PSORIASIS
     Dosage: LOADING DOSE 1
     Dates: start: 20110905, end: 20110905

REACTIONS (5)
  - OROPHARYNGEAL PAIN [None]
  - DYSPHONIA [None]
  - SINUSITIS [None]
  - NASAL CONGESTION [None]
  - COUGH [None]
